FAERS Safety Report 16930271 (Version 1)
Quarter: 2019Q4

REPORT INFORMATION
  Report Type: Spontaneous
  Country: GB (occurrence: GB)
  Receive Date: 20191017
  Receipt Date: 20191017
  Transmission Date: 20200122
  Serious: Yes (Hospitalization, Other)
  Sender: FDA-Public Use
  Company Number: GB-MYLANLABS-2019M1097289

PATIENT
  Age: 11 Year
  Sex: Male

DRUGS (3)
  1. OMEPRAZOLE. [Concomitant]
     Active Substance: OMEPRAZOLE
     Dosage: 20 MILLIGRAM, QD
  2. AZATHIOPRINE. [Suspect]
     Active Substance: AZATHIOPRINE
     Indication: CROHN^S DISEASE
     Dosage: 75 MILLIGRAM
     Route: 048
     Dates: start: 20190606, end: 20190711
  3. PREDNISOLONE. [Concomitant]
     Active Substance: PREDNISOLONE
     Dosage: UNK
     Route: 048

REACTIONS (6)
  - Hyperpyrexia [Unknown]
  - Neutropenia [Recovering/Resolving]
  - Lymphopenia [Recovering/Resolving]
  - Thrombocytopenia [Recovering/Resolving]
  - Bone marrow failure [Recovering/Resolving]
  - Infection [Unknown]
